APPROVED DRUG PRODUCT: ISENTRESS HD
Active Ingredient: RALTEGRAVIR POTASSIUM
Strength: EQ 600MG BASE
Dosage Form/Route: TABLET;ORAL
Application: N022145 | Product #002 | TE Code: AB
Applicant: MERCK SHARP AND DOHME LLC A SUB OF MERCK AND CO INC
Approved: May 26, 2017 | RLD: Yes | RS: Yes | Type: RX

PATENTS:
Patent 7754731 | Expires: Mar 11, 2029
Patent 8771733 | Expires: Jun 2, 2030
Patent 10772888 | Expires: Mar 30, 2032
Patent 9649311 | Expires: Oct 21, 2030
Patent 9649311*PED | Expires: Apr 21, 2031
Patent 7754731*PED | Expires: Sep 11, 2029